FAERS Safety Report 6088198-3 (Version None)
Quarter: 2009Q1

REPORT INFORMATION
  Report Type: 
  Country: None (occurrence: None)
  Receive Date: 20090224
  Receipt Date: 20090219
  Transmission Date: 20090719
  Serious: Yes (Other)
  Sender: FDA-Public Use
  Company Number: BR-JNJFOC-20090205531

PATIENT
  Age: 34 Year
  Sex: Female
  Weight: 44 kg

DRUGS (1)
  1. ORTHO EVRA [Suspect]
     Indication: CONTRACEPTION
     Dosage: NORELGESTROMIN 6 MG/ ETHINYL ESTRADIOL 0.6 MG
     Route: 062

REACTIONS (3)
  - BARRETT'S OESOPHAGUS [None]
  - HELICOBACTER GASTRITIS [None]
  - NAUSEA [None]
